FAERS Safety Report 4821388-3 (Version None)
Quarter: 2005Q4

REPORT INFORMATION
  Report Type: 
  Country: None (occurrence: None)
  Receive Date: 20051107
  Receipt Date: 20051026
  Transmission Date: 20060501
  Serious: Yes (Death)
  Sender: FDA-Public Use
  Company Number: US-JNJFOC-20051005600

PATIENT
  Sex: Male
  Weight: 89.1 kg

DRUGS (8)
  1. REMICADE [Suspect]
     Route: 042
  2. REMICADE [Suspect]
     Route: 042
  3. REMICADE [Suspect]
     Route: 042
  4. PREDNISONE [Concomitant]
  5. IRON SUPPLEMENT [Concomitant]
  6. BLOOD TRANSFUSION [Concomitant]
  7. ASACOL [Concomitant]
  8. AZATHIOPRINE [Concomitant]

REACTIONS (9)
  - AGGRESSION [None]
  - DEEP VEIN THROMBOSIS [None]
  - DIARRHOEA HAEMORRHAGIC [None]
  - FALL [None]
  - HAEMOGLOBIN DECREASED [None]
  - MUSCLE SPASMS [None]
  - PAIN [None]
  - PROCTOCOLECTOMY [None]
  - PULMONARY EMBOLISM [None]
